FAERS Safety Report 9065178 (Version 1)
Quarter: 2013Q1

REPORT INFORMATION
  Report Type: Report from Study
  Country: US (occurrence: US)
  Receive Date: 20130130
  Receipt Date: 20130130
  Transmission Date: 20140127
  Serious: No
  Sender: FDA-Public Use
  Company Number: US-ABBOTT-12P-163-0969471-00

PATIENT
  Age: 41 Year
  Sex: Female

DRUGS (2)
  1. HUMIRA 40 MG/0.8 ML PEN [Suspect]
     Indication: RHEUMATOID ARTHRITIS
     Dates: start: 20120526, end: 20120730
  2. ALLEGRA [Concomitant]
     Indication: SEASONAL ALLERGY
     Dosage: 1 TABLET DAILY

REACTIONS (6)
  - Drug dose omission [Unknown]
  - Upper respiratory tract infection [Not Recovered/Not Resolved]
  - Sinusitis [Not Recovered/Not Resolved]
  - Ear infection [Not Recovered/Not Resolved]
  - White blood cell count decreased [Unknown]
  - Cystitis [Unknown]
